FAERS Safety Report 5368087-X (Version None)
Quarter: 2007Q2

REPORT INFORMATION
  Report Type: 
  Country: None (occurrence: None)
  Receive Date: 20070622
  Receipt Date: 20070614
  Transmission Date: 20071010
  Serious: Yes (Life-Threatening)
  Sender: FDA-Public Use
  Company Number: JP-MERCK-0706USA02626

PATIENT
  Age: 69 Year
  Sex: Female

DRUGS (2)
  1. FOSAMAX [Suspect]
     Indication: OSTEOPOROSIS
     Route: 048
     Dates: end: 20070101
  2. PREDNISOLONE [Concomitant]
     Indication: POLYMYOSITIS
     Route: 048

REACTIONS (1)
  - SPONDYLITIS [None]
